FAERS Safety Report 17091963 (Version 2)
Quarter: 2021Q4

REPORT INFORMATION
  Report Type: Spontaneous
  Country: LB (occurrence: LB)
  Receive Date: 20191129
  Receipt Date: 20211213
  Transmission Date: 20220303
  Serious: Yes (Hospitalization)
  Sender: FDA-Public Use
  Company Number: LB-PFIZER INC-2019513215

PATIENT
  Age: 50 Year
  Sex: Female

DRUGS (2)
  1. IBRANCE [Suspect]
     Active Substance: PALBOCICLIB
     Indication: Breast cancer metastatic
     Dosage: 125 MG, DAILY
     Route: 048
     Dates: start: 201907
  2. FASLODEX [Concomitant]
     Active Substance: FULVESTRANT
     Dosage: 250 MG

REACTIONS (4)
  - Decreased immune responsiveness [Unknown]
  - Red blood cell count decreased [Unknown]
  - Blood magnesium decreased [Unknown]
  - Blood potassium decreased [Unknown]
